FAERS Safety Report 5345745-4 (Version None)
Quarter: 2007Q2

REPORT INFORMATION
  Report Type: 
  Country: None (occurrence: None)
  Receive Date: 20070430
  Receipt Date: 20070202
  Transmission Date: 20071010
  Serious: No
  Sender: FDA-Public Use
  Company Number: 260668

PATIENT
  Sex: Female

DRUGS (3)
  1. NOVOLOG [Suspect]
     Indication: DIABETES MELLITUS
     Dosage: SLIDING SCALE (25,20,15,10,5), SUBCUTANEOUS
     Route: 058
  2. LEVEMIR [Suspect]
     Indication: DIABETES MELLITUS
     Dosage: 60 IU, QD, SUBCUTANEOUS
     Route: 058
  3. ACTOS /01460201/ (PIOGLITAZONE) [Concomitant]

REACTIONS (1)
  - BLOOD GLUCOSE INCREASED [None]
